FAERS Safety Report 6133255-6 (Version None)
Quarter: 2009Q1

REPORT INFORMATION
  Report Type: 
  Country: None (occurrence: None)
  Receive Date: 20090326
  Receipt Date: 20090323
  Transmission Date: 20090719
  Serious: Yes (Death)
  Sender: FDA-Public Use
  Company Number: LB-AVENTIS-200911442EU

PATIENT
  Age: 40 Year
  Sex: Male
  Weight: 110 kg

DRUGS (3)
  1. LOVENOX [Suspect]
     Route: 058
  2. ZYPREXA [Concomitant]
     Indication: DEPRESSION
  3. RIVOTRIL [Concomitant]
     Indication: DEPRESSION

REACTIONS (2)
  - DRUG INEFFECTIVE [None]
  - PULMONARY EMBOLISM [None]
